FAERS Safety Report 6152195-X (Version None)
Quarter: 2009Q2

REPORT INFORMATION
  Report Type: 
  Country: None (occurrence: None)
  Receive Date: 20090410
  Receipt Date: 20090113
  Transmission Date: 20091009
  Serious: No
  Sender: FDA-Public Use
  Company Number: US-ASTRAZENECA-2009UW01105

PATIENT
  Sex: Male

DRUGS (1)
  1. TENORMIN [Suspect]
     Indication: MITRAL VALVE DISEASE
     Dosage: 50 MG
     Route: 048

REACTIONS (1)
  - ILL-DEFINED DISORDER [None]
